FAERS Safety Report 26019665 (Version 3)
Quarter: 2025Q4

REPORT INFORMATION
  Report Type: Report from Study
  Country: CA (occurrence: CA)
  Receive Date: 20251110
  Receipt Date: 20251217
  Transmission Date: 20260118
  Serious: Yes (Other)
  Sender: PFIZER
  Company Number: CA-PFIZER INC-202201056625

PATIENT
  Age: 62 Year
  Sex: Male
  Weight: 119 kg

DRUGS (9)
  1. RUXIENCE [Suspect]
     Active Substance: RITUXIMAB-PVVR
     Indication: Rheumatoid arthritis
     Dosage: 1000 MG; DAY 1 AND DAY 15
     Route: 042
     Dates: start: 20221101, end: 20221115
  2. RUXIENCE [Suspect]
     Active Substance: RITUXIMAB-PVVR
     Dosage: 1000 MG; DAY 1 AND DAY 15
     Route: 042
     Dates: start: 20230605, end: 20230605
  3. RUXIENCE [Suspect]
     Active Substance: RITUXIMAB-PVVR
     Dosage: 1000 MG; DAY 1 AND DAY 15
     Route: 042
     Dates: start: 20230620, end: 20230620
  4. RUXIENCE [Suspect]
     Active Substance: RITUXIMAB-PVVR
     Dosage: 1000 MG; DAY 1 AND DAY 15
     Route: 042
     Dates: start: 20231220, end: 20240103
  5. RUXIENCE [Suspect]
     Active Substance: RITUXIMAB-PVVR
     Dosage: 1000 MG; DAY 1 AND DAY 15
     Route: 042
     Dates: start: 20240702
  6. RUXIENCE [Suspect]
     Active Substance: RITUXIMAB-PVVR
     Dosage: 1000 MG; DAY 1 AND DAY 15 (AFTER 2 WEEKS)
     Route: 042
     Dates: start: 20240716
  7. RUXIENCE [Suspect]
     Active Substance: RITUXIMAB-PVVR
     Dosage: 1000 MG, DAY 1 AND 15
     Route: 042
     Dates: start: 20250107
  8. RUXIENCE [Suspect]
     Active Substance: RITUXIMAB-PVVR
     Dosage: 1000 MG, DAY 1 AND 15
     Route: 042
     Dates: start: 20250121
  9. INDAPAMIDE\PERINDOPRIL [Concomitant]
     Active Substance: INDAPAMIDE\PERINDOPRIL
     Dosage: 1 DF
     Route: 065

REACTIONS (5)
  - Interstitial lung disease [Unknown]
  - Condition aggravated [Unknown]
  - Infusion site extravasation [Recovering/Resolving]
  - Infusion site swelling [Recovering/Resolving]
  - Condition aggravated [Not Recovered/Not Resolved]

NARRATIVE: CASE EVENT DATE: 20240716
